FAERS Safety Report 24703501 (Version 1)
Quarter: 2024Q4

REPORT INFORMATION
  Report Type: Spontaneous
  Country: MX (occurrence: MX)
  Receive Date: 20241205
  Receipt Date: 20241205
  Transmission Date: 20250115
  Serious: Yes (Hospitalization, Other)
  Sender: JOHNSON AND JOHNSON
  Company Number: MX-BAYER-2024A172083

PATIENT
  Age: 74 Year
  Sex: Female

DRUGS (3)
  1. RIVAROXABAN [Suspect]
     Active Substance: RIVAROXABAN
     Indication: Peripheral arterial occlusive disease
     Dosage: UNK
     Route: 048
  2. CILOSTAZOL [Concomitant]
     Active Substance: CILOSTAZOL
     Indication: Product used for unknown indication
  3. UNSPECIFIED INGREDIENT [Concomitant]
     Active Substance: UNSPECIFIED INGREDIENT
     Indication: Product used for unknown indication

REACTIONS (11)
  - Diverticulitis [Unknown]
  - Anastomotic stenosis [Unknown]
  - Peripheral arterial occlusive disease [Unknown]
  - Dyspnoea [Unknown]
  - Blood pressure systolic decreased [Unknown]
  - Blood lactic acid increased [Unknown]
  - Fibrin D dimer increased [Unknown]
  - Right ventricular dysfunction [Unknown]
  - Lung disorder [Unknown]
  - Coronary artery disease [Unknown]
  - Product use in unapproved indication [Unknown]

NARRATIVE: CASE EVENT DATE: 20230101
